FAERS Safety Report 8584478 (Version 2)
Quarter: 2013Q1

REPORT INFORMATION
  Report Type: Spontaneous
  Country: US (occurrence: US)
  Receive Date: 20120529
  Receipt Date: 20130228
  Transmission Date: 20140127
  Serious: No
  Sender: FDA-Public Use
  Company Number: US-ABBOTT-12P-163-0924251-00

PATIENT
  Age: 46 Year
  Sex: Male

DRUGS (3)
  1. ANDROGEL 1.62% [Suspect]
     Indication: BLOOD TESTOSTERONE DECREASED
     Dosage: 1 PUMP PRESS DAILY
     Route: 061
     Dates: end: 20120213
  2. ANDROGEL 1.62% [Suspect]
     Dosage: 2 PUMP PRESS DAILY
     Route: 061
     Dates: start: 20120213, end: 20120330
  3. ANDROGEL 1.62% [Suspect]
     Dosage: 1PUMP/DAY, THEN 2 PUMP/DAY ALTERNATING
     Route: 061
     Dates: start: 20120330

REACTIONS (2)
  - Blood testosterone increased [Unknown]
  - Blood testosterone decreased [Unknown]
